FAERS Safety Report 4975832-1 (Version None)
Quarter: 2006Q2

REPORT INFORMATION
  Report Type: 
  Country: None (occurrence: None)
  Receive Date: 20060411
  Receipt Date: 20060331
  Transmission Date: 20061013
  Serious: Yes (Hospitalization)
  Sender: FDA-Public Use
  Company Number: MEDI-0004318

PATIENT
  Age: 6 Month
  Weight: 4.7 kg

DRUGS (5)
  1. SYNAGIS [Suspect]
     Indication: ANTIVIRAL PROPHYLAXIS
     Dosage: 60 MG, 1 IN 30 D, INTRAMUSCULAR  SEE IMAGE
     Route: 030
     Dates: start: 20051107, end: 20051107
  2. SYNAGIS [Suspect]
     Indication: ANTIVIRAL PROPHYLAXIS
     Dosage: 60 MG, 1 IN 30 D, INTRAMUSCULAR  SEE IMAGE
     Route: 030
     Dates: start: 20051205
  3. SYNAGIS [Suspect]
     Indication: ANTIVIRAL PROPHYLAXIS
     Dosage: 60 MG, 1 IN 30 D, INTRAMUSCULAR  SEE IMAGE
     Route: 030
     Dates: start: 20060109
  4. SYNAGIS [Suspect]
     Indication: ANTIVIRAL PROPHYLAXIS
     Dosage: 60 MG, 1 IN 30 D, INTRAMUSCULAR  SEE IMAGE
     Route: 030
     Dates: start: 20060210
  5. SYNAGIS [Suspect]
     Indication: ANTIVIRAL PROPHYLAXIS
     Dosage: 60 MG, 1 IN 30 D, INTRAMUSCULAR  SEE IMAGE
     Route: 030
     Dates: start: 20060317

REACTIONS (1)
  - BRONCHIOLITIS [None]
